FAERS Safety Report 8029914-0 (Version None)
Quarter: 2011Q4

REPORT INFORMATION
  Report Type: 
  Country: None (occurrence: None)
  Receive Date: 20111130
  Receipt Date: 20110627
  Transmission Date: 20120403
  Serious: Yes (Hospitalization, Other)
  Sender: FDA-Public Use
  Company Number: US201105004244

PATIENT
  Age: 37 Year
  Sex: Female
  Weight: 136.1 kg

DRUGS (20)
  1. ADDERALL 10 [Concomitant]
  2. WELLBUTRIN [Concomitant]
  3. NEURONTIN [Concomitant]
  4. PRAVACHOL [Concomitant]
  5. TOPAMAX [Concomitant]
  6. COSOPT [Concomitant]
  7. ZESTRIL [Concomitant]
  8. NEVANAC (NEPAFENAC) [Concomitant]
  9. ACE INHIBITORS [Concomitant]
  10. GLUMETZA [Concomitant]
  11. CELLCEPT [Concomitant]
  12. BYETTA [Suspect]
     Indication: TYPE 2 DIABETES MELLITUS
     Dosage: 5 UG, BID, SUBCUTANEOUS, 10 UG, BID, SUBCUTANEOUS
     Route: 058
     Dates: start: 20100528, end: 20110510
  13. BYETTA [Suspect]
     Indication: TYPE 2 DIABETES MELLITUS
     Dosage: 5 UG, BID, SUBCUTANEOUS, 10 UG, BID, SUBCUTANEOUS
     Route: 058
     Dates: start: 20100423, end: 20100528
  14. ASCORBIC ACID [Concomitant]
  15. BALANCED B-50 (AMINOBENZOIC ACID, BIOTIN, CALCIUM PANTOTHENATE, CHOLIN [Concomitant]
  16. ALPHAGAN [Concomitant]
  17. CELEXA [Concomitant]
  18. CYMBALTA [Concomitant]
  19. ACTOS [Concomitant]
  20. AMBIEN [Concomitant]

REACTIONS (3)
  - PANCREATITIS [None]
  - CHOLELITHIASIS [None]
  - WEIGHT DECREASED [None]
